FAERS Safety Report 15933670 (Version 1)
Quarter: 2019Q1

REPORT INFORMATION
  Report Type: Report from Study
  Country: JP (occurrence: JP)
  Receive Date: 20190207
  Receipt Date: 20190207
  Transmission Date: 20190417
  Serious: Yes (Life-Threatening)
  Sender: FDA-Public Use
  Company Number: JP-ASTRAZENECA-2019SE21975

PATIENT
  Age: 23847 Day
  Sex: Female

DRUGS (9)
  1. FORXIGA [Suspect]
     Active Substance: DAPAGLIFLOZIN
     Indication: TYPE 2 DIABETES MELLITUS
     Route: 048
     Dates: start: 20150619, end: 20171129
  2. KINEDAK [Concomitant]
     Active Substance: EPALRESTAT
     Route: 048
  3. METFORMIN HYDROCHLORIDE. [Concomitant]
     Active Substance: METFORMIN HYDROCHLORIDE
     Indication: TYPE 2 DIABETES MELLITUS
     Route: 048
     Dates: start: 20160401, end: 20160602
  4. AMARYL [Concomitant]
     Active Substance: GLIMEPIRIDE
     Indication: TYPE 2 DIABETES MELLITUS
     Route: 048
     Dates: start: 20150619, end: 20171129
  5. AMARYL [Concomitant]
     Active Substance: GLIMEPIRIDE
     Indication: TYPE 2 DIABETES MELLITUS
     Route: 048
     Dates: end: 20150618
  6. AMLODIN OD [Concomitant]
     Active Substance: AMLODIPINE BESYLATE
     Route: 048
  7. METFORMIN HYDROCHLORIDE. [Concomitant]
     Active Substance: METFORMIN HYDROCHLORIDE
     Indication: TYPE 2 DIABETES MELLITUS
     Route: 048
     Dates: start: 20160603, end: 20171129
  8. VALSARTAN. [Concomitant]
     Active Substance: VALSARTAN
     Route: 048
  9. SUINY [Concomitant]
     Active Substance: ANAGLIPTIN
     Indication: TYPE 2 DIABETES MELLITUS
     Route: 048
     Dates: start: 20150619, end: 20160331

REACTIONS (1)
  - Gastric cancer [Not Recovered/Not Resolved]

NARRATIVE: CASE EVENT DATE: 20171117
